FAERS Safety Report 20559487 (Version 3)
Quarter: 2022Q2

REPORT INFORMATION
  Report Type: Spontaneous
  Country: US (occurrence: US)
  Receive Date: 20220307
  Receipt Date: 20220422
  Transmission Date: 20220721
  Serious: Yes (Death, Hospitalization)
  Sender: FDA-Public Use
  Company Number: US-ALKERMES INC.-ALK-2022-001056

PATIENT
  Age: 63 Year
  Sex: Male
  Weight: 105 kg

DRUGS (2)
  1. VIVITROL [Suspect]
     Active Substance: NALTREXONE
     Indication: Alcoholism
     Dosage: 380 MILLIGRAM, Q4WK
     Route: 030
     Dates: start: 20220104, end: 20220104
  2. VIVITROL [Suspect]
     Active Substance: NALTREXONE
     Dosage: 380 MILLIGRAM, Q4WK
     Route: 030

REACTIONS (5)
  - Intestinal perforation [Fatal]
  - Septic shock [Fatal]
  - Hepatitis alcoholic [Fatal]
  - Pancreatitis acute [Fatal]
  - Alcoholism [Fatal]

NARRATIVE: CASE EVENT DATE: 20220222
